FAERS Safety Report 6804263-4 (Version None)
Quarter: 2010Q2

REPORT INFORMATION
  Report Type: 
  Country: None (occurrence: None)
  Receive Date: 20100628
  Receipt Date: 20070306
  Transmission Date: 20101027
  Serious: No
  Sender: FDA-Public Use
  Company Number: US-PFIZER INC-2007017654

PATIENT
  Age: 75 Year
  Sex: Male

DRUGS (3)
  1. NIFEDIPINE [Suspect]
     Indication: HYPERTENSION
     Route: 048
     Dates: start: 20050801, end: 20060701
  2. ENALAPRIL MALEATE [Concomitant]
  3. LABETALOL HYDROCHLORIDE [Concomitant]

REACTIONS (5)
  - ABDOMINAL DISTENSION [None]
  - DYSPEPSIA [None]
  - FOREIGN BODY [None]
  - NAUSEA [None]
  - VOMITING [None]
